FAERS Safety Report 4864428-8 (Version None)
Quarter: 2005Q4

REPORT INFORMATION
  Report Type: 
  Country: None (occurrence: None)
  Receive Date: 20051221
  Receipt Date: 20051221
  Transmission Date: 20060501
  Serious: Yes (Other)
  Sender: FDA-Public Use
  Company Number: None

PATIENT
  Age: 33 Year
  Sex: Female
  Weight: 58 kg

DRUGS (1)
  1. VANCOMYCIN [Suspect]
     Indication: LIVER ABSCESS
     Dosage: 1GRAM  Q12HOURS  IV
     Route: 042
     Dates: start: 20051122, end: 20051213

REACTIONS (1)
  - NEUTROPENIA [None]
